FAERS Safety Report 11711120 (Version 1)
Quarter: 2015Q4

REPORT INFORMATION
  Report Type: Spontaneous
  Country: US (occurrence: US)
  Receive Date: 20151104
  Receipt Date: 20151104
  Transmission Date: 20160304
  Serious: No
  Sender: FDA-Public Use
  Company Number: US-ELI_LILLY_AND_COMPANY-US201105002579

PATIENT
  Age: 59 Year
  Sex: Female

DRUGS (2)
  1. FORTEO [Suspect]
     Active Substance: TERIPARATIDE
     Dosage: UNK, UNKNOWN
     Dates: start: 2010
  2. CALTRATE                           /00108001/ [Concomitant]

REACTIONS (3)
  - Gallbladder disorder [Unknown]
  - Blood calcium increased [Recovering/Resolving]
  - Blood alkaline phosphatase increased [Unknown]
